FAERS Safety Report 5134490-6 (Version None)
Quarter: 2006Q4

REPORT INFORMATION
  Report Type: 
  Country: None (occurrence: None)
  Receive Date: 20061025
  Receipt Date: 20060914
  Transmission Date: 20070319
  Serious: Yes (Life-Threatening)
  Sender: FDA-Public Use
  Company Number: JP-AVENTIS-200612868JP

PATIENT
  Age: 63 Year
  Sex: Female
  Weight: 68 kg

DRUGS (5)
  1. AMARYL [Suspect]
     Indication: DIABETES MELLITUS
     Route: 048
     Dates: start: 20040127, end: 20040625
  2. AMARYL [Suspect]
     Route: 048
     Dates: start: 20040701, end: 20060119
  3. CIPROFLOXACIN [Concomitant]
     Indication: GASTROENTERITIS
     Route: 048
     Dates: start: 20060103, end: 20060108
  4. LOXONIN                            /00890701/ [Concomitant]
     Indication: GASTROENTERITIS
     Route: 048
     Dates: start: 20060103, end: 20060108
  5. NAUZELIN [Concomitant]
     Indication: GASTROENTERITIS
     Route: 048
     Dates: start: 20060103, end: 20060108

REACTIONS (4)
  - ANAEMIA [None]
  - BLOOD PRESSURE INCREASED [None]
  - PAROXYSMAL NOCTURNAL HAEMOGLOBINURIA [None]
  - RENAL IMPAIRMENT [None]
